FAERS Safety Report 9954859 (Version 1)
Quarter: 2014Q1

REPORT INFORMATION
  Report Type: Spontaneous
  Country: JP (occurrence: JP)
  Receive Date: 20140304
  Receipt Date: 20140304
  Transmission Date: 20141002
  Serious: Yes (Other)
  Sender: FDA-Public Use
  Company Number: JP-PFIZER INC-2014055617

PATIENT
  Age: 74 Year
  Sex: Male

DRUGS (6)
  1. UNASYN-S [Suspect]
     Dosage: UNK
     Route: 041
  2. BFLUID [Concomitant]
     Route: 041
  3. SOLACET [Concomitant]
     Route: 041
  4. NEOPHAGEN [Concomitant]
     Route: 041
  5. TULOBUTEROL [Concomitant]
     Route: 062
  6. CARBOCISTEINE [Concomitant]
     Dosage: UNK
     Route: 048

REACTIONS (2)
  - Rhabdomyolysis [Unknown]
  - Blood creatine phosphokinase increased [Unknown]
